FAERS Safety Report 23481248 (Version 5)
Quarter: 2024Q2

REPORT INFORMATION
  Report Type: Spontaneous
  Country: US (occurrence: US)
  Receive Date: 20240205
  Receipt Date: 20240606
  Transmission Date: 20240716
  Serious: No
  Sender: FDA-Public Use
  Company Number: US-PFIZER INC-202400017323

PATIENT
  Age: 16 Year
  Sex: Male
  Weight: 65.76 kg

DRUGS (1)
  1. GENOTROPIN [Suspect]
     Active Substance: SOMATROPIN
     Dosage: 2.6 MG, DAILY

REACTIONS (3)
  - Device use error [Unknown]
  - Device malfunction [Unknown]
  - Device breakage [Unknown]
